FAERS Safety Report 19069072 (Version 1)
Quarter: 2021Q1

REPORT INFORMATION
  Report Type: Spontaneous
  Country: US (occurrence: US)
  Receive Date: 20210329
  Receipt Date: 20210329
  Transmission Date: 20210420
  Serious: Yes (Hospitalization)
  Sender: FDA-Public Use
  Company Number: None

PATIENT
  Age: 84 Year
  Sex: Female

DRUGS (1)
  1. CINACALCET. [Suspect]
     Active Substance: CINACALCET
     Indication: CHRONIC KIDNEY DISEASE
     Dosage: ?          OTHER FREQUENCY:THREE DAYS A WEEK;?
     Route: 048
     Dates: start: 20200205

REACTIONS (2)
  - Femur fracture [None]
  - Therapy interrupted [None]

NARRATIVE: CASE EVENT DATE: 20210312
